FAERS Safety Report 13565485 (Version 1)
Quarter: 2017Q2

REPORT INFORMATION
  Report Type: Spontaneous
  Country: IN (occurrence: IN)
  Receive Date: 20170519
  Receipt Date: 20170519
  Transmission Date: 20170830
  Serious: Yes (Other)
  Sender: FDA-Public Use
  Company Number: IN-TORRENT-00001149

PATIENT
  Age: 47 Year
  Sex: Male
  Weight: 82 kg

DRUGS (8)
  1. TRINICALM PLUS TAB [Suspect]
     Active Substance: TRIFLUOPERAZINE\TRIHEXYPHENIDYL
  2. OLIMELT [Suspect]
     Active Substance: OLANZAPINE
  3. CLONOTRIL [Suspect]
     Active Substance: CLONAZEPAM
  4. RESPIDON [Suspect]
     Active Substance: RISPERIDONE
  5. SERENACE [Suspect]
     Active Substance: HALOPERIDOL
  6. ZINCOVIT - VITAMINS NOS [Suspect]
     Active Substance: VITAMINS
  7. ZAPIZ [Suspect]
     Active Substance: CLONAZEPAM
  8. PACITANE [Suspect]
     Active Substance: TRIHEXYPHENIDYL HYDROCHLORIDE

REACTIONS (3)
  - Diarrhoea [Unknown]
  - Haematochezia [Unknown]
  - Constipation [Unknown]
